FAERS Safety Report 17695858 (Version 3)
Quarter: 2022Q1

REPORT INFORMATION
  Report Type: Report from Study
  Country: CA (occurrence: None)
  Receive Date: 20200423
  Receipt Date: 20220120
  Transmission Date: 20220423
  Serious: Yes (Other)
  Sender: FDA-Public Use
  Company Number: CA-MERCK HEALTHCARE KGAA-9157609

PATIENT
  Age: 23 Year
  Sex: Female

DRUGS (3)
  1. REBIF [Suspect]
     Active Substance: INTERFERON BETA-1A
     Indication: Product used for unknown indication
     Dosage: REBIF PREFILLED SYRINGE
     Route: 058
  2. BENADRYL [Suspect]
     Active Substance: DIPHENHYDRAMINE HYDROCHLORIDE
     Indication: Product used for unknown indication
     Route: 065
  3. OCRELIZUMAB [Suspect]
     Active Substance: OCRELIZUMAB
     Indication: Relapsing-remitting multiple sclerosis
     Dosage: INFUSION
     Route: 042

REACTIONS (9)
  - Asthenia [Recovered/Resolved]
  - Infusion related reaction [Recovered/Resolved]
  - Malaise [Unknown]
  - Panic attack [Recovered/Resolved]
  - Somnolence [Recovered/Resolved]
  - Syncope [Recovered/Resolved]
  - Hypoaesthesia [Recovered/Resolved]
  - Dizziness [Recovered/Resolved]
  - Drug ineffective [Recovered/Resolved]
